FAERS Safety Report 5850844-4 (Version None)
Quarter: 2008Q3

REPORT INFORMATION
  Report Type: 
  Country: None (occurrence: None)
  Receive Date: 20080820
  Receipt Date: 20080812
  Transmission Date: 20090109
  Serious: Yes (Other)
  Sender: FDA-Public Use
  Company Number: DE-TEVA-175915ISR

PATIENT
  Sex: Female

DRUGS (1)
  1. BISOPROLOL FUMARATE [Suspect]
     Indication: HYPERTENSION
     Dosage: 0.5 DF DOSAGE FORM,1 DAY
     Route: 048
     Dates: end: 20080518

REACTIONS (2)
  - OEDEMATOUS PANCREATITIS [None]
  - PANCREATITIS ACUTE [None]
